FAERS Safety Report 4273781-8 (Version None)
Quarter: 2004Q1

REPORT INFORMATION
  Report Type: 
  Country: None (occurrence: None)
  Receive Date: 20040114
  Receipt Date: 20031104
  Transmission Date: 20041129
  Serious: Yes (Other)
  Sender: FDA-Public Use
  Company Number: 03-0072

PATIENT
  Age: 3 Year
  Sex: Male

DRUGS (2)
  1. PONTAL (MEFANAMIC ACID) / PONSTEL [Suspect]
     Indication: NASOPHARYNGITIS
     Dates: start: 19980401
  2. CEFACLOR [Suspect]
     Indication: NASOPHARYNGITIS
     Dates: start: 19980401

REACTIONS (4)
  - CYANOSIS [None]
  - DRUG ERUPTION [None]
  - NAUSEA [None]
  - SKIN DESQUAMATION [None]
